FAERS Safety Report 9746388 (Version 2)
Quarter: 2014Q1

REPORT INFORMATION
  Report Type: Spontaneous
  Country: US (occurrence: US)
  Receive Date: 20131211
  Receipt Date: 20140318
  Transmission Date: 20141002
  Serious: Yes (Other)
  Sender: FDA-Public Use
  Company Number: US-GLAXOSMITHKLINE-A1052484A

PATIENT
  Age: 62 Year
  Sex: Female

DRUGS (7)
  1. ADVAIR [Suspect]
     Indication: CHRONIC OBSTRUCTIVE PULMONARY DISEASE
     Dosage: 1PUFF TWICE PER DAY
     Route: 055
  2. TUDORZA [Concomitant]
  3. SPIRIVA [Concomitant]
  4. BLOOD PRESSURE MEDICATION [Concomitant]
  5. MULTIVITAMIN [Concomitant]
  6. OXYGEN [Concomitant]
  7. BREO ELLIPTA [Concomitant]

REACTIONS (4)
  - Pneumonia [Unknown]
  - Dyspnoea [Unknown]
  - Drug ineffective [Unknown]
  - Lung disorder [Unknown]
